FAERS Safety Report 9981609 (Version 1)
Quarter: 2014Q1

REPORT INFORMATION
  Report Type: Spontaneous
  Country: US (occurrence: None)
  Receive Date: 20140131
  Receipt Date: 20140131
  Transmission Date: 20141002
  Serious: Yes (Other)
  Sender: FDA-Public Use
  Company Number: 097759

PATIENT
  Age: 27 Year
  Sex: Female

DRUGS (4)
  1. KEPPRA [Suspect]
     Indication: CONVULSION
  2. GABITRIL [Suspect]
     Dates: start: 1996, end: 2007
  3. TRILEPTAL [Concomitant]
  4. ZOLOFT /01011401 [Concomitant]

REACTIONS (1)
  - Suicidal ideation [None]
